FAERS Safety Report 12374893 (Version 1)
Quarter: 2016Q2

REPORT INFORMATION
  Report Type: Spontaneous
  Country: US (occurrence: None)
  Receive Date: 20160516
  Receipt Date: 20160516
  Transmission Date: 20160815
  Serious: Yes (Life-Threatening)
  Sender: FDA-Public Use
  Company Number: None

PATIENT
  Age: 71 Year
  Sex: Male
  Weight: 83.92 kg

DRUGS (12)
  1. SYMBICORT [Concomitant]
     Active Substance: BUDESONIDE\FORMOTEROL FUMARATE DIHYDRATE
  2. FUROSEMIDE. [Concomitant]
     Active Substance: FUROSEMIDE
  3. PREDNISONE. [Concomitant]
     Active Substance: PREDNISONE
  4. CALCIUM [Concomitant]
     Active Substance: CALCIUM
  5. ALBUTEROL. [Concomitant]
     Active Substance: ALBUTEROL
  6. NOVALIN N [Concomitant]
  7. METAPROLOL [Concomitant]
     Active Substance: METOPROLOL
  8. IPRATROPIUM BROMIDE. [Concomitant]
     Active Substance: IPRATROPIUM BROMIDE
  9. HUMIRA [Suspect]
     Active Substance: ADALIMUMAB
     Indication: RHEUMATOID ARTHRITIS
     Dosage: 17 INJECTION(S) EVERY 2 WEEKS GIVEN INTO/UNDER THE SKIN
     Route: 058
     Dates: start: 20150727, end: 20160309
  10. NEBULIZER [Concomitant]
     Active Substance: DEVICE
  11. MULTIVITAMIN [Concomitant]
     Active Substance: VITAMINS
  12. ASPIRIN. [Concomitant]
     Active Substance: ASPIRIN

REACTIONS (7)
  - Peripheral swelling [None]
  - Dyspnoea [None]
  - Asthenia [None]
  - Chronic obstructive pulmonary disease [None]
  - Myocardial infarction [None]
  - Pneumonia [None]
  - Depression [None]

NARRATIVE: CASE EVENT DATE: 20160121
